FAERS Safety Report 7343687-6 (Version None)
Quarter: 2011Q1

REPORT INFORMATION
  Report Type: 
  Country: None (occurrence: None)
  Receive Date: 20110310
  Receipt Date: 20101025
  Transmission Date: 20110831
  Serious: No
  Sender: FDA-Public Use
  Company Number: A0888621A

PATIENT
  Age: 47 Year
  Sex: Male

DRUGS (2)
  1. ANTI-EPILEPTIC MEDICATION [Concomitant]
     Indication: EPILEPSY
  2. NICORETTE [Suspect]
     Dates: start: 20101008

REACTIONS (2)
  - DRUG ADMINISTRATION ERROR [None]
  - NICOTINE DEPENDENCE [None]
